FAERS Safety Report 7991484-0 (Version None)
Quarter: 2011Q4

REPORT INFORMATION
  Report Type: 
  Country: None (occurrence: None)
  Receive Date: 20111219
  Receipt Date: 20111212
  Transmission Date: 20120403
  Serious: Yes (Other)
  Sender: FDA-Public Use
  Company Number: US-JNJFOC-20111205816

PATIENT
  Sex: Female
  Weight: 117.48 kg

DRUGS (6)
  1. STELARA [Suspect]
     Route: 058
     Dates: start: 20030722, end: 20040719
  2. INH [Concomitant]
  3. STELARA [Suspect]
     Indication: PSORIASIS
     Route: 058
     Dates: start: 20100719
  4. ASPIRIN [Concomitant]
  5. STELARA [Suspect]
     Route: 058
     Dates: start: 20101111
  6. SEASONALE [Suspect]
     Indication: PRODUCT USED FOR UNKNOWN INDICATION
     Route: 048

REACTIONS (1)
  - PULMONARY EMBOLISM [None]
